FAERS Safety Report 14436867 (Version 1)
Quarter: 2018Q1

REPORT INFORMATION
  Report Type: Spontaneous
  Country: JP (occurrence: JP)
  Receive Date: 20180125
  Receipt Date: 20180125
  Transmission Date: 20180509
  Serious: Yes (Hospitalization, Other)
  Sender: FDA-Public Use
  Company Number: JP-CIPLA LTD.-2018JP02013

PATIENT

DRUGS (2)
  1. CARBOPLATIN. [Suspect]
     Active Substance: CARBOPLATIN
     Indication: OVARIAN CANCER RECURRENT
     Dosage: 550 MG/M2, AT 3-WEEK INTERVALS; CYCLICAL
     Route: 065
  2. PACLITAXEL. [Suspect]
     Active Substance: PACLITAXEL
     Indication: OVARIAN CANCER RECURRENT
     Dosage: 270 MG/M2, AT 3-WEEK INTERVALS; CYCLICAL
     Route: 065

REACTIONS (3)
  - Lung consolidation [Unknown]
  - Mycobacterium avium complex infection [Unknown]
  - Atypical mycobacterial lower respiratory tract infection [Unknown]
